FAERS Safety Report 7313892-3 (Version None)
Quarter: 2011Q1

REPORT INFORMATION
  Report Type: 
  Country: None (occurrence: None)
  Receive Date: 20110225
  Receipt Date: 20110222
  Transmission Date: 20110831
  Serious: Yes (Life-Threatening, Hospitalization)
  Sender: FDA-Public Use
  Company Number: US-EISAI INC-E7389-01094-CLI-US

PATIENT
  Sex: Male

DRUGS (14)
  1. E7389 (BOLD) [Suspect]
     Indication: NON-SMALL CELL LUNG CANCER
     Route: 041
     Dates: start: 20101203
  2. AMBIEN [Concomitant]
     Indication: INSOMNIA
     Route: 048
     Dates: start: 20080815
  3. ALOXI [Concomitant]
     Indication: PREMEDICATION
     Route: 042
     Dates: start: 20101203
  4. SPIRIVA [Concomitant]
     Indication: CHRONIC OBSTRUCTIVE PULMONARY DISEASE
     Dates: start: 20100326
  5. PEMETREXED [Suspect]
     Indication: NON-SMALL CELL LUNG CANCER
  6. VALTREX [Concomitant]
     Route: 048
     Dates: start: 20090127
  7. ZOCOR [Concomitant]
     Route: 048
     Dates: start: 20101004
  8. FLOVENT [Concomitant]
     Indication: CHRONIC OBSTRUCTIVE PULMONARY DISEASE
     Route: 048
     Dates: start: 20100212
  9. NORVASC [Concomitant]
     Indication: HYPERTENSION
     Route: 048
     Dates: start: 20091121
  10. VIAGRA [Concomitant]
     Indication: ERECTILE DYSFUNCTION
     Route: 048
     Dates: start: 20040101
  11. CYANOCOBALAMIN [Concomitant]
     Indication: VITAMIN B COMPLEX DEFICIENCY
     Route: 042
     Dates: start: 20100702
  12. FOLIC ACID [Concomitant]
     Route: 048
     Dates: start: 20100212
  13. POLYETHYLENE GLYCOL [Concomitant]
     Indication: CONSTIPATION
     Route: 048
     Dates: start: 20080701
  14. POTASSIUM [Concomitant]
     Indication: SUPPLEMENTATION THERAPY
     Dosage: UNKNOWN
     Route: 048
     Dates: start: 20100625

REACTIONS (1)
  - PNEUMONIA [None]
